FAERS Safety Report 5218382-X (Version None)
Quarter: 2007Q1

REPORT INFORMATION
  Report Type: 
  Country: None (occurrence: None)
  Receive Date: 20070124
  Receipt Date: 20070112
  Transmission Date: 20070707
  Serious: Yes (Other)
  Sender: FDA-Public Use
  Company Number: US-PFIZER INC-2007004445

PATIENT
  Sex: Male

DRUGS (9)
  1. DILANTIN [Suspect]
  2. ALBUTEROL [Concomitant]
     Route: 055
  3. LORATADINE [Concomitant]
  4. MONTELUKAST [Concomitant]
  5. PHENOBARBITAL TAB [Concomitant]
  6. CENTRUM SILVER [Concomitant]
  7. CALCIUM WITH VITAMIN D [Concomitant]
  8. ALL OTHER THERAPEUTIC PRODUCTS [Concomitant]
     Route: 055
  9. ALL OTHER THERAPEUTIC PRODUCTS [Concomitant]

REACTIONS (5)
  - CONVULSION [None]
  - DRUG LEVEL BELOW THERAPEUTIC [None]
  - RESORPTION BONE INCREASED [None]
  - SINUS DISORDER [None]
  - URINARY INCONTINENCE [None]
